FAERS Safety Report 14831506 (Version 2)
Quarter: 2018Q4

REPORT INFORMATION
  Report Type: Spontaneous
  Country: FR (occurrence: FR)
  Receive Date: 20180501
  Receipt Date: 20181213
  Transmission Date: 20190204
  Serious: Yes (Hospitalization)
  Sender: FDA-Public Use
  Company Number: FR-SUN PHARMACEUTICAL INDUSTRIES LTD-2018R1-171383

PATIENT
  Age: 50 Year
  Sex: Male

DRUGS (3)
  1. PARACETAMOL [Suspect]
     Active Substance: ACETAMINOPHEN
     Indication: PAIN
     Dosage: UNK
     Route: 048
     Dates: start: 20180202, end: 20180220
  2. DAFALGAN [Suspect]
     Active Substance: ACETAMINOPHEN
     Indication: PAIN
     Dosage: UNK
     Route: 048
     Dates: start: 20180202, end: 20180220
  3. DOLIPRANE [Suspect]
     Active Substance: ACETAMINOPHEN
     Indication: PAIN
     Dosage: UNK
     Route: 048
     Dates: start: 20180202, end: 20180220

REACTIONS (2)
  - Intentional overdose [Recovered/Resolved]
  - Hepatitis [Recovering/Resolving]

NARRATIVE: CASE EVENT DATE: 201802
